FAERS Safety Report 22237093 (Version 2)
Quarter: 2024Q2

REPORT INFORMATION
  Report Type: Spontaneous
  Country: US (occurrence: None)
  Receive Date: 20230421
  Receipt Date: 20240418
  Transmission Date: 20240715
  Serious: No
  Sender: FDA-Public Use
  Company Number: US-ROCHE-3292193

PATIENT
  Age: 76 Year
  Sex: Female

DRUGS (1)
  1. ESBRIET [Suspect]
     Active Substance: PIRFENIDONE
     Indication: Idiopathic pulmonary fibrosis
     Dosage: 267MG
     Route: 048
     Dates: start: 20220321

REACTIONS (12)
  - Fatigue [Unknown]
  - Poor quality sleep [Unknown]
  - Dyspepsia [Unknown]
  - Nausea [Recovering/Resolving]
  - Vomiting [Unknown]
  - Dizziness [Unknown]
  - Hypophagia [Unknown]
  - Anosmia [Unknown]
  - Balance disorder [Unknown]
  - Oedema peripheral [Unknown]
  - Dyspnoea [Unknown]
  - Peripheral swelling [Unknown]
